FAERS Safety Report 13768518 (Version 1)
Quarter: 2017Q3

REPORT INFORMATION
  Report Type: Spontaneous
  Country: US (occurrence: US)
  Receive Date: 20170719
  Receipt Date: 20170719
  Transmission Date: 20171127
  Serious: No
  Sender: FDA-Public Use
  Company Number: None

PATIENT
  Age: 69 Year
  Weight: 100 kg

DRUGS (2)
  1. VEDOLIZUMAB [Concomitant]
     Active Substance: VEDOLIZUMAB
  2. METHOTREXATE. [Suspect]
     Active Substance: METHOTREXATE
     Dosage: ?          OTHER DOSE:MG;OTHER FREQUENCY:WEEKLY;?
     Route: 030

REACTIONS (3)
  - Leukopenia [None]
  - Anaemia [None]
  - Asthenia [None]

NARRATIVE: CASE EVENT DATE: 20170626
